FAERS Safety Report 6674678-6 (Version None)
Quarter: 2010Q2

REPORT INFORMATION
  Report Type: 
  Country: None (occurrence: None)
  Receive Date: 20100409
  Receipt Date: 20100401
  Transmission Date: 20101027
  Serious: Yes (Death)
  Sender: FDA-Public Use
  Company Number: JP-BAYER-201011180BYL

PATIENT
  Age: 83 Year
  Sex: Male
  Weight: 50 kg

DRUGS (7)
  1. ASPIRIN [Suspect]
     Indication: TRANSIENT ISCHAEMIC ATTACK
     Dosage: TOTAL DAILY DOSE: 100 MG  UNIT DOSE: 100 MG
     Route: 048
     Dates: start: 20100129, end: 20100205
  2. RADICUT [Suspect]
     Indication: TRANSIENT ISCHAEMIC ATTACK
     Route: 041
     Dates: start: 20100120, end: 20100123
  3. GARTBAN [Suspect]
     Indication: TRANSIENT ISCHAEMIC ATTACK
     Route: 041
     Dates: start: 20100120, end: 20100123
  4. TAIPERACILIN [Suspect]
     Indication: PNEUMONIA ASPIRATION
     Dosage: UNIT DOSE: 2 G
     Route: 041
     Dates: start: 20100120, end: 20100123
  5. PROMAC [Concomitant]
     Indication: PROPHYLAXIS AGAINST GASTROINTESTINAL ULCER
     Dosage: UNIT DOSE: 75 MG
     Route: 048
     Dates: start: 20100129, end: 20100205
  6. EVIPROSTAT [Concomitant]
     Indication: BENIGN PROSTATIC HYPERPLASIA
     Route: 048
     Dates: end: 20100206
  7. MAGLAX [Concomitant]
     Indication: CONSTIPATION
     Route: 048
     Dates: end: 20100206

REACTIONS (3)
  - HAEMOLYTIC ANAEMIA [None]
  - JAUNDICE [None]
  - MALAISE [None]
